FAERS Safety Report 16304125 (Version 1)
Quarter: 2019Q2

REPORT INFORMATION
  Report Type: Report from Study
  Country: JP (occurrence: JP)
  Receive Date: 20190513
  Receipt Date: 20190513
  Transmission Date: 20190711
  Serious: Yes (Hospitalization, Other)
  Sender: FDA-Public Use
  Company Number: JP-ACTELION-A-CH2018-176295

PATIENT
  Age: 53 Year
  Sex: Female

DRUGS (37)
  1. PREDONINE [Suspect]
     Active Substance: PREDNISOLONE
     Dosage: 20 MG, QD
     Route: 048
     Dates: start: 20160712, end: 20160725
  2. SAMSCA [Concomitant]
     Active Substance: TOLVAPTAN
  3. LAMISIL [Concomitant]
     Active Substance: TERBINAFINE HYDROCHLORIDE
  4. LIXIANA [Concomitant]
     Active Substance: EDOXABAN TOSYLATE
  5. PREDONINE [Suspect]
     Active Substance: PREDNISOLONE
     Indication: INTERSTITIAL LUNG DISEASE
     Dosage: 5 MG, QD
     Route: 048
     Dates: start: 20160906, end: 20171001
  6. PREDONINE [Suspect]
     Active Substance: PREDNISOLONE
     Dosage: 12.5 MG, QD
     Route: 048
     Dates: start: 20160702, end: 20160711
  7. PREDONINE [Suspect]
     Active Substance: PREDNISOLONE
     Dosage: 4.5 MG, QD
     Route: 048
     Dates: start: 20171002, end: 20171015
  8. EPOPROSTENOL SODIUM. [Concomitant]
     Active Substance: EPOPROSTENOL SODIUM
     Indication: PULMONARY HYPERTENSION
  9. METHYCOBAL [Concomitant]
     Active Substance: METHYLCOBALAMIN
  10. LOPEMIN [Concomitant]
     Active Substance: LOPERAMIDE HYDROCHLORIDE
  11. PREDONINE [Suspect]
     Active Substance: PREDNISOLONE
     Dosage: 15 MG, QD
     Route: 048
     Dates: start: 20160726, end: 20160808
  12. PREDONINE [Suspect]
     Active Substance: PREDNISOLONE
     Dosage: 5 MG, QD
     Route: 048
     Dates: start: 20171016
  13. SPIRONOLACTONE. [Concomitant]
     Active Substance: SPIRONOLACTONE
  14. NEUROVITAN [Concomitant]
     Active Substance: VITAMINS
  15. LYRICA [Concomitant]
     Active Substance: PREGABALIN
  16. OPSUMIT [Suspect]
     Active Substance: MACITENTAN
     Indication: PULMONARY ARTERIAL HYPERTENSION
     Dosage: 10 MG, QD
     Route: 048
     Dates: start: 20160708
  17. CEREKINON [Concomitant]
     Active Substance: TRIMEBUTINE
  18. BIO-THREE [Concomitant]
     Active Substance: HERBALS
  19. THYRADIN S [Concomitant]
     Active Substance: LEVOTHYROXINE SODIUM
  20. PREDONINE [Suspect]
     Active Substance: PREDNISOLONE
     Dosage: 10 MG, QD
     Route: 048
     Dates: start: 20160809, end: 20160822
  21. NEXIUM [Concomitant]
     Active Substance: ESOMEPRAZOLE MAGNESIUM
  22. SLOW-K [Concomitant]
     Active Substance: POTASSIUM CHLORIDE
  23. FUROSEMIDE. [Concomitant]
     Active Substance: FUROSEMIDE
  24. ENTERONON-R [Concomitant]
     Active Substance: PROBIOTICS NOS
  25. OLOPATADINE HYDROCHLORIDE. [Concomitant]
     Active Substance: OLOPATADINE HYDROCHLORIDE
  26. KALGUT [Concomitant]
     Active Substance: DENOPAMINE
  27. OXYGEN. [Concomitant]
     Active Substance: OXYGEN
  28. CORTRIL [Concomitant]
     Active Substance: HYDROCORTISONE
  29. FERROUS CITRATE NA [Concomitant]
     Active Substance: SODIUM FERROUS CITRATE
  30. BAKTAR [Concomitant]
     Active Substance: SULFAMETHOXAZOLE\TRIMETHOPRIM
  31. MIYA-BM [Concomitant]
     Active Substance: CLOSTRIDIUM BUTYRICUM SPORES STRAIN M-55
  32. CALONAL [Concomitant]
     Active Substance: ACETAMINOPHEN
  33. PREDONINE [Suspect]
     Active Substance: PREDNISOLONE
     Dosage: 7.5 MG, QD
     Route: 048
     Dates: start: 20160823, end: 20160905
  34. FEBURIC [Concomitant]
     Active Substance: FEBUXOSTAT
  35. DIART [Concomitant]
     Active Substance: AZOSEMIDE
  36. REVATIO [Concomitant]
     Active Substance: SILDENAFIL CITRATE
  37. VITAMEDIN [Concomitant]
     Active Substance: CYANOCOBALAMIN\PYRIDOXINE HYDROCHLORIDE\THIAMINE

REACTIONS (5)
  - Herpes zoster [Recovering/Resolving]
  - Hypothyroidism [Recovering/Resolving]
  - Adrenal insufficiency [Recovered/Resolved]
  - Tinea infection [Recovering/Resolving]
  - Pneumonia [Recovering/Resolving]

NARRATIVE: CASE EVENT DATE: 20161004
